FAERS Safety Report 5477804-X (Version None)
Quarter: 2007Q4

REPORT INFORMATION
  Report Type: 
  Country: None (occurrence: None)
  Receive Date: 20071004
  Receipt Date: 20070927
  Transmission Date: 20080405
  Serious: Yes (Other)
  Sender: FDA-Public Use
  Company Number: NL-SANOFI-SYNTHELABO-A01200710947

PATIENT

DRUGS (1)
  1. ELOXATIN [Suspect]
     Dosage: UNK

REACTIONS (3)
  - BRONCHOSPASM [None]
  - HYPOTENSION [None]
  - SYNCOPE [None]
